FAERS Safety Report 9536397 (Version 1)
Quarter: 2013Q3

REPORT INFORMATION
  Report Type: Spontaneous
  Country: JP (occurrence: JP)
  Receive Date: 20130919
  Receipt Date: 20130919
  Transmission Date: 20140515
  Serious: Yes (Other)
  Sender: FDA-Public Use
  Company Number: JP-JNJFOC-20130908968

PATIENT
  Sex: Female

DRUGS (3)
  1. INFLIXIMAB, RECOMBINANT [Suspect]
     Indication: BEHCET^S SYNDROME
     Route: 042
  2. PREDNISOLONE [Concomitant]
     Route: 065
  3. PREDNISOLONE [Concomitant]
     Route: 065

REACTIONS (2)
  - Surgery [Unknown]
  - Drug effect decreased [Unknown]
